FAERS Safety Report 20920020 (Version 1)
Quarter: 2022Q2

REPORT INFORMATION
  Report Type: Spontaneous
  Country: US (occurrence: None)
  Receive Date: 20220604
  Receipt Date: 20220604
  Transmission Date: 20220721
  Serious: Yes (Hospitalization)
  Sender: FDA-Public Use
  Company Number: None

PATIENT
  Sex: Female
  Weight: 64 kg

DRUGS (2)
  1. CISPLATIN [Suspect]
     Active Substance: CISPLATIN
  2. ALIMTA [Concomitant]
     Active Substance: PEMETREXED DISODIUM

REACTIONS (9)
  - Nausea [None]
  - Vomiting [None]
  - Diarrhoea [None]
  - Flank pain [None]
  - Dysuria [None]
  - Tachycardia [None]
  - Heart rate increased [None]
  - Neutrophil count abnormal [None]
  - Bacterial test positive [None]

NARRATIVE: CASE EVENT DATE: 20220525
